FAERS Safety Report 5880917-1 (Version None)
Quarter: 2008Q3

REPORT INFORMATION
  Report Type: 
  Country: None (occurrence: None)
  Receive Date: 20080912
  Receipt Date: 20080613
  Transmission Date: 20090109
  Serious: No
  Sender: FDA-Public Use
  Company Number: US-ABBOTT-08P-163-0457180-00

PATIENT
  Sex: Female
  Weight: 99.88 kg

DRUGS (19)
  1. HUMIRA [Suspect]
     Indication: PSORIATIC ARTHROPATHY
     Route: 058
     Dates: start: 20080415
  2. ZOLPIDEM TARTRATE [Concomitant]
     Indication: SLEEP DISORDER THERAPY
     Dosage: MOST TIMES 1 TAKE HALF PILL
     Route: 048
     Dates: start: 20070501
  3. HYDROXYZINE [Concomitant]
     Indication: PRURITUS
     Route: 048
     Dates: start: 20080501
  4. NARINE [Concomitant]
     Indication: HYPERSENSITIVITY
     Route: 048
     Dates: start: 20071201
  5. ATENOLOL [Concomitant]
     Indication: HYPERTENSION
     Route: 048
  6. ALDACTAZIDE-A [Concomitant]
     Indication: HYPERTENSION
     Route: 048
  7. RABEPRAZOLE SODIUM [Concomitant]
     Indication: GASTROOESOPHAGEAL REFLUX DISEASE
     Route: 048
  8. GABAPENTIN [Concomitant]
     Indication: FIBROMYALGIA
     Route: 048
  9. ACETAMINOPHEN W/ PROPOXYPHENE HCL [Concomitant]
     Indication: PAIN
     Dosage: UP TO 400 MG DAILY, 100 MG AS NEEDED EVERY 6 HOURS
     Route: 048
  10. FENTYL [Concomitant]
     Indication: IRRITABLE BOWEL SYNDROME
     Route: 048
  11. CYANOCOBALAMIN [Concomitant]
     Indication: VITAMIN SUPPLEMENTATION
     Route: 050
  12. MELATONIN [Concomitant]
     Indication: SLEEP DISORDER THERAPY
     Route: 048
  13. FOLIC ACID [Concomitant]
     Indication: VITAMIN SUPPLEMENTATION
     Route: 048
     Dates: start: 20080501
  14. COLECALCIFEROL [Concomitant]
     Indication: VITAMIN SUPPLEMENTATION
     Route: 048
     Dates: start: 20080401
  15. FISH OIL-OMEGA 3 [Concomitant]
     Indication: MINERAL SUPPLEMENTATION
     Route: 048
     Dates: start: 20080401
  16. LINUM USITATISSIMUM SEED OIL [Concomitant]
     Indication: MEDICAL DIET
     Route: 048
     Dates: start: 20080401
  17. LIDOCAINE [Concomitant]
     Indication: COCCYDYNIA
     Route: 061
     Dates: start: 20080512
  18. CALCIUM D3 [Concomitant]
     Indication: VITAMIN SUPPLEMENTATION
     Dosage: 2000/800 DAILY, 1000/400 SHOULD TAKE 3, TAKES 2
     Route: 048
     Dates: start: 20070501
  19. CALCIUM D3 [Concomitant]
     Indication: MINERAL SUPPLEMENTATION

REACTIONS (3)
  - BACK PAIN [None]
  - JOINT SWELLING [None]
  - MUSCULOSKELETAL STIFFNESS [None]
